FAERS Safety Report 8270787-9 (Version None)
Quarter: 2012Q2

REPORT INFORMATION
  Report Type: 
  Country: None (occurrence: None)
  Receive Date: 20120406
  Receipt Date: 20120330
  Transmission Date: 20120825
  Serious: Yes (Disabling)
  Sender: FDA-Public Use
  Company Number: GER/UKI/12/0023044

PATIENT
  Age: 81 Year
  Sex: Male
  Weight: 81 kg

DRUGS (7)
  1. FINASTERIDE [Suspect]
     Indication: PRODUCT USED FOR UNKNOWN INDICATION
     Dates: start: 20111116
  2. SOTALOL HCL [Concomitant]
  3. ISPAGHULA HUSK (PLANTAGO OVATA HUSK) [Concomitant]
  4. DOXAZOSIN MESYLATE [Concomitant]
  5. WARFARIN SODIUM [Concomitant]
  6. VISCOTEARS (CARBOMER) [Concomitant]
  7. MEBEVERINE HYDROCHLORIDE (MEBEVERINE HYDROCHLORIDE) [Concomitant]

REACTIONS (2)
  - URINE FLOW DECREASED [None]
  - URINARY RETENTION [None]
